FAERS Safety Report 6100504-X (Version None)
Quarter: 2009Q1

REPORT INFORMATION
  Report Type: 
  Country: None (occurrence: None)
  Receive Date: 20090227
  Receipt Date: 20090227
  Transmission Date: 20090719
  Serious: Yes (Hospitalization)
  Sender: FDA-Public Use
  Company Number: None

PATIENT
  Age: 45 Year
  Sex: Female

DRUGS (4)
  1. NIFEDIPINE [Suspect]
     Dosage: ORAL
     Route: 048
  2. ATENOLOL [Suspect]
     Dosage: ORAL
  3. BENZODIAZEPINE DERIVATIVES [Concomitant]
  4. COUMADIN [Concomitant]

REACTIONS (19)
  - ATRIOVENTRICULAR BLOCK FIRST DEGREE [None]
  - BLOOD PRESSURE DECREASED [None]
  - CELL DEATH [None]
  - COMA [None]
  - CONTINUOUS HAEMODIAFILTRATION [None]
  - COORDINATION ABNORMAL [None]
  - DRUG INEFFECTIVE [None]
  - DRUG TOXICITY [None]
  - EJECTION FRACTION DECREASED [None]
  - GASTROINTESTINAL HYPOMOTILITY [None]
  - HEART RATE DECREASED [None]
  - INTERNATIONAL NORMALISED RATIO INCREASED [None]
  - METABOLIC ACIDOSIS [None]
  - MULTI-ORGAN FAILURE [None]
  - MULTIPLE DRUG OVERDOSE [None]
  - RENAL FAILURE [None]
  - RESPIRATORY ACIDOSIS [None]
  - RHABDOMYOLYSIS [None]
  - WHITE BLOOD CELL COUNT INCREASED [None]
